FAERS Safety Report 7572679-7 (Version None)
Quarter: 2011Q2

REPORT INFORMATION
  Report Type: 
  Country: None (occurrence: None)
  Receive Date: 20110627
  Receipt Date: 20110617
  Transmission Date: 20111010
  Serious: No
  Sender: FDA-Public Use
  Company Number: US-BIOGENIDEC-2011BI022662

PATIENT
  Age: 47 Year
  Sex: Female

DRUGS (1)
  1. AVONEX [Suspect]
     Indication: MULTIPLE SCLEROSIS
     Route: 030
     Dates: start: 20110611

REACTIONS (7)
  - FEELING ABNORMAL [None]
  - TOOTH ABSCESS [None]
  - ORAL PAIN [None]
  - PYREXIA [None]
  - MYALGIA [None]
  - CHILLS [None]
  - NAUSEA [None]
